FAERS Safety Report 9852053 (Version 1)
Quarter: 2014Q1

REPORT INFORMATION
  Report Type: Spontaneous
  Country: US (occurrence: US)
  Receive Date: 20140129
  Receipt Date: 20140129
  Transmission Date: 20141002
  Serious: No
  Sender: FDA-Public Use
  Company Number: US-PFIZER INC-2014024453

PATIENT
  Age: 86 Year
  Sex: Female
  Weight: 78 kg

DRUGS (3)
  1. CORTISONE ACETATE [Suspect]
     Indication: ARTHRITIS
     Dosage: UNK
     Dates: start: 201311
  2. PREDNISONE [Concomitant]
     Dosage: 1 MG, 3X/DAY
  3. ENALAPRIL [Concomitant]
     Indication: HYPERTENSION
     Dosage: UNK

REACTIONS (6)
  - Headache [Recovered/Resolved]
  - Pain in jaw [Unknown]
  - Toothache [Unknown]
  - Tinnitus [Not Recovered/Not Resolved]
  - Eating disorder [Unknown]
  - Activities of daily living impaired [Unknown]
